FAERS Safety Report 8775329 (Version 10)
Quarter: 2014Q4

REPORT INFORMATION
  Report Type: Spontaneous
  Country: US (occurrence: US)
  Receive Date: 20120910
  Receipt Date: 20141208
  Transmission Date: 20150529
  Serious: Yes (Death, Life-Threatening, Hospitalization, Other)
  Sender: FDA-Public Use
  Company Number: US-009507513-1209USA001982

PATIENT
  Sex: Female
  Weight: 77.98 kg

DRUGS (2)
  1. JANUVIA [Suspect]
     Active Substance: SITAGLIPTIN PHOSPHATE
     Indication: TYPE 2 DIABETES MELLITUS
     Dosage: 50 MG, QD
     Route: 048
     Dates: start: 20090523, end: 20120615
  2. JANUVIA [Suspect]
     Active Substance: SITAGLIPTIN PHOSPHATE
     Dosage: 100 MG, QD
     Route: 048
     Dates: start: 20120714, end: 20120814

REACTIONS (25)
  - Pulmonary mass [Unknown]
  - Pulmonary fibrosis [Unknown]
  - Renal cyst [Unknown]
  - Abdominal distension [Unknown]
  - Bladder prolapse [Unknown]
  - Pancreatic carcinoma metastatic [Fatal]
  - Acute kidney injury [Recovering/Resolving]
  - Hyperkalaemia [Unknown]
  - Colon adenoma [Unknown]
  - Aortic arteriosclerosis [Unknown]
  - Flatulence [Unknown]
  - Radiotherapy to joint [Unknown]
  - Pancreatitis [Recovering/Resolving]
  - Bone disorder [Unknown]
  - Drug intolerance [Unknown]
  - Headache [Unknown]
  - Metastases to bone [Unknown]
  - Renal failure [Unknown]
  - Radiotherapy to pancreas [Unknown]
  - Gastrointestinal disorder [Unknown]
  - Tinnitus [Unknown]
  - Hypoglycaemia [Unknown]
  - Deafness [Unknown]
  - Gastric disorder [Unknown]
  - Dry skin [Unknown]

NARRATIVE: CASE EVENT DATE: 201001
